FAERS Safety Report 5327891-4 (Version None)
Quarter: 2007Q2

REPORT INFORMATION
  Report Type: 
  Country: None (occurrence: None)
  Receive Date: 20070517
  Receipt Date: 20070508
  Transmission Date: 20071010
  Serious: Yes (Death, Other)
  Sender: FDA-Public Use
  Company Number: CA-PFIZER INC-2007038067

PATIENT

DRUGS (1)
  1. LIPITOR [Suspect]
     Dosage: DAILY DOSE:40MG
     Route: 048

REACTIONS (2)
  - DIALYSIS [None]
  - RHABDOMYOLYSIS [None]
